FAERS Safety Report 15401433 (Version 1)
Quarter: 2018Q3

REPORT INFORMATION
  Report Type: Spontaneous
  Country: US (occurrence: US)
  Receive Date: 20180914
  Receipt Date: 20180914
  Transmission Date: 20181010
  Serious: Yes (Hospitalization)
  Sender: FDA-Public Use
  Company Number: None

PATIENT
  Age: 32 Year
  Sex: Female
  Weight: 69.75 kg

DRUGS (1)
  1. OMNIPAQUE [Suspect]
     Active Substance: IOHEXOL
     Indication: CONTRAST MEDIA DEPOSITION
     Dosage: ?          OTHER FREQUENCY:1 ? IV INJECTION;?
     Route: 040

REACTIONS (3)
  - Rash [None]
  - Dyspnoea [None]
  - Vertigo [None]

NARRATIVE: CASE EVENT DATE: 20180912
